FAERS Safety Report 4791880-9 (Version None)
Quarter: 2005Q4

REPORT INFORMATION
  Report Type: 
  Country: None (occurrence: None)
  Receive Date: 20051007
  Receipt Date: 20050922
  Transmission Date: 20060501
  Serious: Yes (Other)
  Sender: FDA-Public Use
  Company Number: GBWYE001322SEP05

PATIENT
  Age: 55 Year
  Sex: Female

DRUGS (9)
  1. ENBREL [Suspect]
     Indication: RHEUMATOID ARTHRITIS
     Dosage: 25MG FREQUENCY UNKNOWN
     Route: 058
     Dates: start: 20050620, end: 20050905
  2. ALBUTEROL [Concomitant]
     Indication: ASTHMA
     Dosage: 8MG FREQUENCY UNKNOWN
  3. ZOPICLONE [Concomitant]
     Indication: SLEEP DISORDER
     Dosage: 7.5MG FREQUENCY UNKNOWN
  4. RAMIPRIL [Concomitant]
     Indication: HYPERTENSION
     Dosage: 10MG FREQUENCY UNKNOWN
  5. BENDROFLUMETHIAZIDE [Concomitant]
     Indication: HYPERTENSION
     Dosage: 2.5MG FREQUENCY UNKNOWN
  6. LEXAPRO [Concomitant]
     Indication: DEPRESSION
     Dosage: 5MG FREQUENCY UNKNOWN
  7. CRESTOR [Concomitant]
     Dosage: 10MG FREQUENCY UNKNOWN
  8. LANSOPRAZOLE [Concomitant]
     Indication: GASTRIC DISORDER
     Dosage: 30MG FREQUENCY UNKNOWN
  9. BETAHISTINE HYDROCHLORIDE [Concomitant]
     Indication: MENIERE'S DISEASE
     Dosage: 24MG FREQUENCY UNKNOWN

REACTIONS (3)
  - DERMATITIS [None]
  - DRUG ERUPTION [None]
  - LICHENOID KERATOSIS [None]
